FAERS Safety Report 8580556-8 (Version None)
Quarter: 2012Q3

REPORT INFORMATION
  Report Type: 
  Country: None (occurrence: None)
  Receive Date: 20120808
  Receipt Date: 20120724
  Transmission Date: 20120928
  Serious: Yes (Other)
  Sender: FDA-Public Use
  Company Number: CHPA2012US016763

PATIENT
  Age: 36 Year
  Sex: Female

DRUGS (1)
  1. VAGISTAT-1 [Suspect]
     Indication: VULVOVAGINAL MYCOTIC INFECTION
     Dosage: 300 MG, ONCE/SINGLE
     Route: 067
     Dates: start: 20120705, end: 20120705

REACTIONS (5)
  - VULVOVAGINAL BURNING SENSATION [None]
  - CONDITION AGGRAVATED [None]
  - VULVOVAGINAL ERYTHEMA [None]
  - VULVOVAGINAL MYCOTIC INFECTION [None]
  - VULVOVAGINAL DISCOMFORT [None]
